FAERS Safety Report 9227513 (Version 1)
Quarter: 2013Q2

REPORT INFORMATION
  Report Type: Spontaneous
  Country: JP (occurrence: JP)
  Receive Date: 20130412
  Receipt Date: 20130412
  Transmission Date: 20140414
  Serious: Yes (Hospitalization)
  Sender: FDA-Public Use
  Company Number: PHHY2011JP93586

PATIENT
  Sex: Male

DRUGS (3)
  1. ZONISAMIDE [Suspect]
     Indication: COMPLEX PARTIAL SEIZURES
     Dosage: 300 MG, UNK
  2. CARBAMAZEPINE [Suspect]
     Dosage: 400 MG, UNK
  3. PHENYTOIN [Suspect]

REACTIONS (6)
  - Personality disorder [Recovered/Resolved]
  - Emotional disorder [Recovered/Resolved]
  - Mood altered [Recovered/Resolved]
  - Convulsion [Recovered/Resolved]
  - Complex partial seizures [Recovered/Resolved]
  - Temporal lobe epilepsy [Unknown]
